FAERS Safety Report 25270645 (Version 1)
Quarter: 2025Q2

REPORT INFORMATION
  Report Type: Spontaneous
  Country: US (occurrence: US)
  Receive Date: 20250505
  Receipt Date: 20250505
  Transmission Date: 20250716
  Serious: No
  Sender: ODIN PHARMACEUTICALS
  Company Number: USA--2024-US-000411

PATIENT
  Age: 81 Year
  Sex: Female

DRUGS (3)
  1. BRIMONIDINE TARTRATE [Suspect]
     Active Substance: BRIMONIDINE TARTRATE
     Dates: start: 20240602
  2. TRAVOPROST [Concomitant]
     Active Substance: TRAVOPROST
  3. DORZOLAMIDE [Concomitant]
     Active Substance: DORZOLAMIDE

REACTIONS (1)
  - Eye irritation [Recovered/Resolved]

NARRATIVE: CASE EVENT DATE: 20240603
